FAERS Safety Report 12788920 (Version 6)
Quarter: 2018Q1

REPORT INFORMATION
  Report Type: Report from Study
  Country: CO (occurrence: CO)
  Receive Date: 20160928
  Receipt Date: 20180216
  Transmission Date: 20180508
  Serious: Yes (Life-Threatening, Hospitalization, Other)
  Sender: FDA-Public Use
  Company Number: CO-INCYTE CORPORATION-2015IN004650

PATIENT

DRUGS (4)
  1. JAKAVI [Suspect]
     Active Substance: RUXOLITINIB
     Indication: POLYCYTHAEMIA VERA
  2. JAKAVI [Suspect]
     Active Substance: RUXOLITINIB
     Indication: POLYCYTHAEMIA VERA
  3. JAKAVI [Suspect]
     Active Substance: RUXOLITINIB
     Indication: THROMBOCYTOSIS
  4. JAKAVI [Suspect]
     Active Substance: RUXOLITINIB
     Indication: MYELOFIBROSIS
     Dosage: 20 MG, BID (Q12H, ALSO REPORTED AS TWICE A DAY)
     Route: 048
     Dates: start: 20130115, end: 20170227

REACTIONS (34)
  - Subdural effusion [Unknown]
  - Myelofibrosis [Unknown]
  - Haematoma [Unknown]
  - Platelet count increased [Unknown]
  - Blood count abnormal [Unknown]
  - Polycythaemia vera [Unknown]
  - Skin lesion [Unknown]
  - Blood potassium increased [Unknown]
  - Skin hyperpigmentation [Unknown]
  - Haemolysis [Unknown]
  - Skin discolouration [Unknown]
  - Vision blurred [Unknown]
  - Thrombocytosis [Unknown]
  - Fall [Unknown]
  - Joint injury [Unknown]
  - Feeling drunk [Unknown]
  - Product use in unapproved indication [Unknown]
  - Splenic haemorrhage [Unknown]
  - Burning sensation [Unknown]
  - Contusion [Unknown]
  - White blood cell count increased [Unknown]
  - Cerebral thrombosis [Unknown]
  - Gastric dilatation [Unknown]
  - Pain in extremity [Unknown]
  - Blood cholesterol abnormal [Unknown]
  - Blood triglycerides abnormal [Unknown]
  - White blood cell count abnormal [Unknown]
  - Depressed mood [Unknown]
  - Dizziness [Unknown]
  - Wound [Unknown]
  - Movement disorder [Unknown]
  - Malaise [Unknown]
  - Pyrexia [Unknown]
  - Hemiparesis [Unknown]

NARRATIVE: CASE EVENT DATE: 20151018
